FAERS Safety Report 8186885-4 (Version None)
Quarter: 2012Q1

REPORT INFORMATION
  Report Type: 
  Country: None (occurrence: None)
  Receive Date: 20120306
  Receipt Date: 20120221
  Transmission Date: 20120608
  Serious: Yes (Death, Life-Threatening, Hospitalization)
  Sender: FDA-Public Use
  Company Number: US-JNJFOC-20120203219

PATIENT
  Sex: Female
  Weight: 70.9 kg

DRUGS (9)
  1. REMICADE [Suspect]
     Route: 042
     Dates: start: 20120118
  2. CARAFATE [Concomitant]
     Indication: GASTRIC ULCER
  3. PREDNISONE TAB [Concomitant]
     Indication: CROHN'S DISEASE
  4. CARAFATE [Concomitant]
     Indication: OESOPHAGEAL ULCER
  5. REMICADE [Suspect]
     Indication: CROHN'S DISEASE
     Route: 042
     Dates: start: 20120104
  6. PROTONIX [Concomitant]
     Indication: GASTRIC ULCER
  7. PROTONIX [Concomitant]
     Indication: OESOPHAGEAL ULCER
  8. LIALDA [Concomitant]
     Indication: CROHN'S DISEASE
     Dosage: 3 TABS DAILY
     Dates: start: 20080101
  9. CANASA [Concomitant]
     Indication: CROHN'S DISEASE

REACTIONS (5)
  - ABDOMINAL PAIN [None]
  - NEUTROPENIA [None]
  - PNEUMONIA [None]
  - PANCYTOPENIA [None]
  - CANDIDIASIS [None]
